FAERS Safety Report 15016454 (Version 1)
Quarter: 2018Q2

REPORT INFORMATION
  Report Type: Spontaneous
  Country: DE (occurrence: DE)
  Receive Date: 20180615
  Receipt Date: 20180615
  Transmission Date: 20180711
  Serious: Yes (Death)
  Sender: FDA-Public Use
  Company Number: DE-SAMSUNG BIOEPIS-SB-2017-12437

PATIENT
  Age: 73 Year
  Sex: Male

DRUGS (5)
  1. METHYLPREDNISOLONE. [Suspect]
     Active Substance: METHYLPREDNISOLONE
     Indication: COLITIS
     Dosage: UNKNOWN
     Route: 065
  2. METHYLPREDNISOLONE. [Suspect]
     Active Substance: METHYLPREDNISOLONE
     Route: 042
  3. INFLIXIMAB [Suspect]
     Active Substance: INFLIXIMAB
     Indication: COLITIS
     Dosage: UNKNOWN
     Route: 065
  4. NIVOLUMAB [Suspect]
     Active Substance: NIVOLUMAB
     Indication: MALIGNANT MELANOMA
     Dosage: UNKNOWN
     Route: 065
  5. IPILIMUMAB [Suspect]
     Active Substance: IPILIMUMAB
     Indication: MALIGNANT MELANOMA
     Dosage: UNKNOWN
     Route: 065

REACTIONS (4)
  - Off label use [Unknown]
  - Death [Fatal]
  - Autoimmune colitis [Fatal]
  - Cytomegalovirus infection [Fatal]
